FAERS Safety Report 5336139-6 (Version None)
Quarter: 2007Q1

REPORT INFORMATION
  Report Type: 
  Country: None (occurrence: None)
  Receive Date: 20070302
  Receipt Date: 20070128
  Transmission Date: 20070707
  Serious: No
  Sender: FDA-Public Use
  Company Number: PHEH2007US01380

PATIENT

DRUGS (1)
  1. ENABLEX [Suspect]
     Dosage: 7.5 MG, QD
     Dates: start: 20070125

REACTIONS (2)
  - FAECES DISCOLOURED [None]
  - GASTROINTESTINAL HYPOMOTILITY [None]
